FAERS Safety Report 12894104 (Version 2)
Quarter: 2016Q4

REPORT INFORMATION
  Report Type: Spontaneous
  Country: FR (occurrence: FR)
  Receive Date: 20161028
  Receipt Date: 20161108
  Transmission Date: 20170207
  Serious: Yes (Hospitalization, Other)
  Sender: FDA-Public Use
  Company Number: FR-009507513-1610FRA014756

PATIENT
  Age: 84 Year
  Sex: Female

DRUGS (1)
  1. IMIPENEM AND CILASTATIN [Suspect]
     Active Substance: CILASTATIN SODIUM\IMIPENEM
     Indication: PSEUDOMONAL SEPSIS
     Dosage: 500 MG, BID
     Route: 042
     Dates: start: 20161007, end: 20161021

REACTIONS (4)
  - Coma [Unknown]
  - Hallucination [Recovered/Resolved]
  - Overdose [Unknown]
  - Confusional state [Not Recovered/Not Resolved]

NARRATIVE: CASE EVENT DATE: 201610
